FAERS Safety Report 20047440 (Version 17)
Quarter: 2025Q1

REPORT INFORMATION
  Report Type: Report from Study
  Country: CA (occurrence: CA)
  Receive Date: 20211109
  Receipt Date: 20250109
  Transmission Date: 20250409
  Serious: Yes (Other)
  Sender: TAKEDA
  Company Number: CA-TAKEDA-2021TUS068369

PATIENT
  Age: 62 Year
  Sex: Female

DRUGS (15)
  1. VEDOLIZUMAB [Suspect]
     Active Substance: VEDOLIZUMAB
     Indication: Colitis ulcerative
  2. VEDOLIZUMAB [Suspect]
     Active Substance: VEDOLIZUMAB
     Dosage: 300 MILLIGRAM, Q6WEEKS
     Dates: start: 20220107
  3. VEDOLIZUMAB [Suspect]
     Active Substance: VEDOLIZUMAB
  4. VEDOLIZUMAB [Suspect]
     Active Substance: VEDOLIZUMAB
  5. VEDOLIZUMAB [Suspect]
     Active Substance: VEDOLIZUMAB
     Dosage: 300 MILLIGRAM, Q4WEEKS
     Dates: start: 20230706
  6. VEDOLIZUMAB [Suspect]
     Active Substance: VEDOLIZUMAB
     Dosage: 300 MILLIGRAM, Q4WEEKS
  7. VEDOLIZUMAB [Suspect]
     Active Substance: VEDOLIZUMAB
     Dosage: 300 MILLIGRAM, Q4WEEKS
  8. VEDOLIZUMAB [Suspect]
     Active Substance: VEDOLIZUMAB
     Dosage: 300 MILLIGRAM, Q4WEEKS
  9. AMLODIPINE [Concomitant]
     Active Substance: AMLODIPINE BESYLATE
  10. SITAGLIPTIN [Concomitant]
     Active Substance: SITAGLIPTIN
  11. PRAVASTATIN [Concomitant]
     Active Substance: PRAVASTATIN
  12. TELMISARTAN [Concomitant]
     Active Substance: TELMISARTAN
  13. VITAMIN D [Concomitant]
     Active Substance: VITAMIN D NOS
  14. VITAMIN B12 [Concomitant]
     Active Substance: CYANOCOBALAMIN
  15. SAXAGLIPTIN [Concomitant]
     Active Substance: SAXAGLIPTIN

REACTIONS (18)
  - Colitis ulcerative [Unknown]
  - Asthma [Recovering/Resolving]
  - Large intestine polyp [Unknown]
  - Change of bowel habit [Unknown]
  - Bone pain [Unknown]
  - Anaemia [Unknown]
  - Product dose omission issue [Unknown]
  - Poor venous access [Unknown]
  - Pseudopolyp [Unknown]
  - Inflammation [Unknown]
  - Impaired quality of life [Unknown]
  - Off label use [Unknown]
  - Sinus disorder [Recovering/Resolving]
  - Osteoporosis [Unknown]
  - Arthritis [Recovering/Resolving]
  - Constipation [Unknown]
  - Fatigue [Unknown]
  - Influenza [Recovering/Resolving]

NARRATIVE: CASE EVENT DATE: 20220107
